FAERS Safety Report 11868949 (Version 3)
Quarter: 2016Q2

REPORT INFORMATION
  Report Type: Spontaneous
  Country: US (occurrence: US)
  Receive Date: 20151225
  Receipt Date: 20160520
  Transmission Date: 20160815
  Serious: Yes (Other)
  Sender: FDA-Public Use
  Company Number: US-AMGEN-USASP2015135603

PATIENT
  Age: 67 Year
  Sex: Female

DRUGS (1)
  1. ENBREL [Suspect]
     Active Substance: ETANERCEPT
     Indication: RHEUMATOID ARTHRITIS
     Dosage: 50 MG, QWK
     Route: 065
     Dates: start: 201208

REACTIONS (10)
  - Injection site bruising [Unknown]
  - Hepatic steatosis [Unknown]
  - Musculoskeletal disorder [Unknown]
  - Abdominal pain upper [Unknown]
  - Arthropathy [Unknown]
  - Pain [Unknown]
  - Gastrointestinal inflammation [Unknown]
  - Injection site pain [Unknown]
  - Appendicitis [Unknown]
  - Peritonitis [Unknown]

NARRATIVE: CASE EVENT DATE: 2015
